FAERS Safety Report 4488547-3 (Version None)
Quarter: 2004Q4

REPORT INFORMATION
  Report Type: 
  Country: None (occurrence: None)
  Receive Date: 20041028
  Receipt Date: 20041028
  Transmission Date: 20050328
  Serious: No
  Sender: FDA-Public Use
  Company Number: None

PATIENT
  Age: 47 Year
  Sex: Female

DRUGS (2)
  1. ZOLOFT [Suspect]
     Indication: ANXIETY
     Dosage: ONE PO QD
     Route: 048
     Dates: start: 20040101, end: 20041022
  2. ZOLOFT [Suspect]
     Indication: PANIC ATTACK
     Dosage: ONE PO QD
     Route: 048
     Dates: start: 20040101, end: 20041022

REACTIONS (4)
  - ANXIETY [None]
  - CONDITION AGGRAVATED [None]
  - PHARMACEUTICAL PRODUCT COMPLAINT [None]
  - SLEEP DISORDER [None]
